FAERS Safety Report 6669252-1 (Version None)
Quarter: 2010Q2

REPORT INFORMATION
  Report Type: 
  Country: None (occurrence: None)
  Receive Date: 20100402
  Receipt Date: 20100318
  Transmission Date: 20101027
  Serious: Yes (Hospitalization, Other)
  Sender: FDA-Public Use
  Company Number: 2010SP016727

PATIENT
  Age: 30 Year
  Sex: Female
  Weight: 113.3993 kg

DRUGS (4)
  1. NUVARING [Suspect]
     Indication: DRUG USE FOR UNKNOWN INDICATION
     Dates: start: 20070814, end: 20070920
  2. CENTRUM [Concomitant]
  3. EXCEDRIN (MIGRAINE) [Concomitant]
  4. EXTRA STRENGTH TYLENOL [Concomitant]

REACTIONS (6)
  - FACTOR V LEIDEN MUTATION [None]
  - PULMONARY EMBOLISM [None]
  - SINUS BRADYCARDIA [None]
  - SUPRAVENTRICULAR EXTRASYSTOLES [None]
  - THROMBOPHLEBITIS [None]
  - WEIGHT INCREASED [None]
